FAERS Safety Report 21412116 (Version 1)
Quarter: 2022Q4

REPORT INFORMATION
  Report Type: Spontaneous
  Country: US (occurrence: None)
  Receive Date: 20221004
  Receipt Date: 20221004
  Transmission Date: 20230113
  Serious: No
  Sender: FDA-Public Use
  Company Number: None

PATIENT
  Age: 56 Year
  Sex: Female
  Weight: 80.74 kg

DRUGS (14)
  1. PROMACTA [Suspect]
     Active Substance: ELTROMBOPAG OLAMINE
     Indication: Iron deficiency anaemia
     Dosage: FREQUENCY : DAILY;?
     Route: 048
  2. ATORVASTATIN [Concomitant]
     Active Substance: ATORVASTATIN
  3. BUPROPION [Concomitant]
     Active Substance: BUPROPION
  4. EPIPEN [Concomitant]
     Active Substance: EPINEPHRINE
  5. FAMOTIDINE [Concomitant]
     Active Substance: FAMOTIDINE
  6. FERRIC POLYSACCHARIDE COMPLEX [Concomitant]
     Active Substance: FERRIC POLYSACCHARIDE COMPLEX
  7. HUMALOG [Concomitant]
     Active Substance: INSULIN LISPRO
  8. IMIPRAMINE [Concomitant]
     Active Substance: IMIPRAMINE
  9. LISINOPRIL [Concomitant]
     Active Substance: LISINOPRIL
  10. METFORMIN [Concomitant]
     Active Substance: METFORMIN HYDROCHLORIDE
  11. PANTOPRAZOLE [Concomitant]
     Active Substance: PANTOPRAZOLE
  12. TERBINAFINE [Concomitant]
     Active Substance: TERBINAFINE
  13. TRULICITY [Concomitant]
     Active Substance: DULAGLUTIDE
  14. XIFAXAN [Concomitant]
     Active Substance: RIFAXIMIN

REACTIONS (1)
  - Hepatic cirrhosis [None]
